FAERS Safety Report 23534050 (Version 1)
Quarter: 2024Q1

REPORT INFORMATION
  Report Type: Spontaneous
  Country: US (occurrence: US)
  Receive Date: 20240216
  Receipt Date: 20240216
  Transmission Date: 20240410
  Serious: Yes (Other)
  Sender: FDA-Public Use
  Company Number: US-Standard Homeopathic-2153317

PATIENT
  Age: 12 Month
  Sex: Female

DRUGS (1)
  1. BABY MUCUS AND COLD RELIEF [Suspect]
     Active Substance: BRYONIA ALBA ROOT\CALCIUM SULFIDE\EUPHRASIA STRICTA\PHOSPHORUS\PULSATILLA VULGARIS\RUMEX CRISPUS ROO
     Route: 048
     Dates: start: 20240201, end: 20240201

REACTIONS (1)
  - Angioedema [Recovered/Resolved]

NARRATIVE: CASE EVENT DATE: 20240201
